FAERS Safety Report 11730310 (Version 1)
Quarter: 2015Q4

REPORT INFORMATION
  Report Type: Spontaneous
  Country: US (occurrence: US)
  Receive Date: 20151110
  Receipt Date: 20151110
  Transmission Date: 20160304
  Serious: No
  Sender: FDA-Public Use
  Company Number: US-ELI_LILLY_AND_COMPANY-US201201007201

PATIENT
  Age: 39 Year
  Sex: Female

DRUGS (2)
  1. FORTEO [Suspect]
     Active Substance: TERIPARATIDE
     Dosage: 20 UG, BID
     Dates: start: 20111207
  2. CALCIUM CITRATE [Concomitant]
     Active Substance: CALCIUM CITRATE
     Dosage: 9 DF, QD

REACTIONS (4)
  - Drug prescribing error [Unknown]
  - Off label use [Unknown]
  - Blood calcium abnormal [Unknown]
  - Calcium metabolism disorder [Unknown]

NARRATIVE: CASE EVENT DATE: 20111207
